FAERS Safety Report 8137586-X (Version None)
Quarter: 2012Q1

REPORT INFORMATION
  Report Type: 
  Country: None (occurrence: None)
  Receive Date: 20120215
  Receipt Date: 20120209
  Transmission Date: 20120608
  Serious: No
  Sender: FDA-Public Use
  Company Number: US-PFIZER INC-2012036825

PATIENT
  Sex: Female
  Weight: 49 kg

DRUGS (3)
  1. LYRICA [Suspect]
     Indication: PAIN
     Dosage: 50 MG, 3X/DAY
     Route: 048
     Dates: start: 20100101, end: 20120103
  2. VITAMIN TAB [Concomitant]
     Dosage: UNK
  3. IBUPROFEN [Concomitant]
     Indication: PAIN
     Dosage: UNK

REACTIONS (5)
  - VITAMIN B12 DECREASED [None]
  - DYSGEUSIA [None]
  - WEIGHT DECREASED [None]
  - MUSCLE TWITCHING [None]
  - PARAESTHESIA ORAL [None]
